FAERS Safety Report 4666587-9 (Version None)
Quarter: 2005Q2

REPORT INFORMATION
  Report Type: 
  Country: None (occurrence: None)
  Receive Date: 20050519
  Receipt Date: 20040531
  Transmission Date: 20051028
  Serious: Yes (Other)
  Sender: FDA-Public Use
  Company Number: PHBS2004CA07295

PATIENT
  Sex: Female

DRUGS (2)
  1. AREDIA [Suspect]
     Indication: BREAST CANCER METASTATIC
     Route: 042
  2. ZOMETA [Suspect]
     Indication: BREAST CANCER METASTATIC
     Route: 065

REACTIONS (5)
  - ASEPTIC NECROSIS BONE [None]
  - BLOODY DISCHARGE [None]
  - BONE DISORDER [None]
  - TOOTH ABSCESS [None]
  - TOOTH EXTRACTION [None]
